FAERS Safety Report 9307058 (Version 2)
Quarter: 2013Q4

REPORT INFORMATION
  Report Type: Spontaneous
  Country: US (occurrence: US)
  Receive Date: 20130523
  Receipt Date: 20131114
  Transmission Date: 20140711
  Serious: Yes (Hospitalization)
  Sender: FDA-Public Use
  Company Number: US-B.I. PHARMACEUTICALS,INC./RIDGEFIELD-2013-BI-14417BP

PATIENT
  Age: 93 Year
  Sex: Female
  Weight: 81.65 kg

DRUGS (5)
  1. PRADAXA [Suspect]
     Indication: ANTICOAGULANT THERAPY
     Dosage: 150 MG
     Dates: start: 20120716
  2. PRADAXA [Suspect]
     Indication: ATRIAL FIBRILLATION
  3. PRADAXA [Suspect]
     Indication: VENTRICULAR TACHYCARDIA
  4. MEDICATION FOR THYROID [Concomitant]
     Indication: THYROID DISORDER
  5. MEDICATION FOR HY BLOOD PRESSURE [Concomitant]
     Indication: HYPERTENSION

REACTIONS (2)
  - Gastrointestinal angiodysplasia haemorrhagic [Unknown]
  - Haemorrhagic anaemia [Unknown]
